FAERS Safety Report 4439183-6 (Version None)
Quarter: 2004Q3

REPORT INFORMATION
  Report Type: 
  Country: None (occurrence: None)
  Receive Date: 20040831
  Receipt Date: 20040816
  Transmission Date: 20050211
  Serious: Yes (Disabling)
  Sender: FDA-Public Use
  Company Number: 8719

PATIENT

DRUGS (1)
  1. PAMIDRONATE DISODIUM [Suspect]
     Indication: FIBROUS DYSPLASIA OF BONE
     Dosage: 60 MG DAILY

REACTIONS (1)
  - DEAFNESS [None]
